FAERS Safety Report 10082782 (Version 1)
Quarter: 2014Q2

REPORT INFORMATION
  Report Type: Spontaneous
  Country: US (occurrence: US)
  Receive Date: 20140416
  Receipt Date: 20140416
  Transmission Date: 20141212
  Serious: No
  Sender: FDA-Public Use
  Company Number: US-GILEAD-2014-0099714

PATIENT
  Age: 75 Year
  Sex: Male

DRUGS (19)
  1. LETAIRIS [Suspect]
     Indication: PULMONARY HYPERTENSION
     Dosage: 10 MG, QD
     Dates: start: 20131015, end: 20131114
  2. LETAIRIS [Suspect]
     Dosage: 5 MG, UNK
     Route: 065
     Dates: end: 20140313
  3. LETAIRIS [Suspect]
     Dosage: 5 MG, QD
     Route: 065
     Dates: start: 20121002
  4. IRON [Concomitant]
  5. PRADAXA [Concomitant]
  6. ALBUTEROL SULFATE [Concomitant]
  7. COLCHICINE [Concomitant]
  8. PREDNISONE [Concomitant]
  9. ALLOPURINOL [Concomitant]
  10. GABAPENTIN [Concomitant]
  11. CLARITIN                           /00917501/ [Concomitant]
  12. LASIX                              /00032601/ [Concomitant]
  13. POTASSIUM [Concomitant]
  14. DILTIAZEM [Concomitant]
  15. PRAVASTATIN [Concomitant]
  16. TRAMADOL [Concomitant]
  17. GLIPIZIDE [Concomitant]
  18. METFORMIN [Concomitant]
  19. ASPIRIN [Concomitant]

REACTIONS (1)
  - Oedema peripheral [Recovered/Resolved]
